FAERS Safety Report 7423668-4 (Version None)
Quarter: 2011Q2

REPORT INFORMATION
  Report Type: 
  Country: None (occurrence: None)
  Receive Date: 20110413
  Receipt Date: 20110413
  Transmission Date: 20111010
  Serious: No
  Sender: FDA-Public Use
  Company Number: None

PATIENT
  Sex: Female

DRUGS (1)
  1. XELODA [Suspect]
     Indication: BREAST CANCER METASTATIC
     Dosage: XELODA 1500MG (HAS 500 MG TABLE BID (TWICE A DAY) BY MOUTH
     Route: 048
     Dates: start: 20110328

REACTIONS (11)
  - HYPOAESTHESIA [None]
  - ORAL MUCOSAL ERYTHEMA [None]
  - WEIGHT DECREASED [None]
  - NAUSEA [None]
  - HEADACHE [None]
  - FATIGUE [None]
  - BURNING SENSATION [None]
  - DRY MOUTH [None]
  - DECREASED APPETITE [None]
  - BALANCE DISORDER [None]
  - MEMORY IMPAIRMENT [None]
